FAERS Safety Report 6675595-8 (Version None)
Quarter: 2010Q2

REPORT INFORMATION
  Report Type: 
  Country: None (occurrence: None)
  Receive Date: 20100409
  Receipt Date: 20100330
  Transmission Date: 20101027
  Serious: Yes (Other)
  Sender: FDA-Public Use
  Company Number: PHHY2009DE45903

PATIENT
  Sex: Female
  Weight: 56 kg

DRUGS (1)
  1. CGS 20267 T30748+ [Suspect]
     Indication: BREAST CANCER
     Dosage: 2.5 MG, DAILY
     Route: 048
     Dates: start: 20090213, end: 20100227

REACTIONS (7)
  - BONE PAIN [None]
  - FATIGUE [None]
  - HOT FLUSH [None]
  - LISTLESS [None]
  - MYALGIA [None]
  - POLYNEUROPATHY [None]
  - SLEEP DISORDER [None]
